FAERS Safety Report 21615663 (Version 2)
Quarter: 2023Q1

REPORT INFORMATION
  Report Type: Spontaneous
  Country: SK (occurrence: SK)
  Receive Date: 20221118
  Receipt Date: 20230120
  Transmission Date: 20230418
  Serious: Yes (Other)
  Sender: FDA-Public Use
  Company Number: SK-JNJFOC-20221140491

PATIENT
  Sex: Female

DRUGS (3)
  1. STELARA [Suspect]
     Active Substance: USTEKINUMAB
     Indication: Crohn^s disease
     Route: 064
     Dates: start: 201707
  2. STELARA [Suspect]
     Active Substance: USTEKINUMAB
     Route: 064
  3. STELARA [Suspect]
     Active Substance: USTEKINUMAB
     Route: 064
     Dates: start: 201903

REACTIONS (2)
  - Premature baby [Unknown]
  - Foetal exposure during pregnancy [Recovered/Resolved]
